FAERS Safety Report 21801277 (Version 1)
Quarter: 2022Q4

REPORT INFORMATION
  Report Type: Report from Study
  Country: US (occurrence: US)
  Receive Date: 20221230
  Receipt Date: 20221230
  Transmission Date: 20230112
  Serious: No
  Sender: FDA-Public Use
  Company Number: US-ACORDA-ACO_171672_2022

PATIENT
  Age: 72 Year
  Sex: Male

DRUGS (5)
  1. INBRIJA [Suspect]
     Active Substance: LEVODOPA
     Indication: Parkinson^s disease
     Dosage: 84 MILLIGRAM, PRN ( NOT TO EXCEED 5 DOSES A DAY)
     Dates: start: 20220201
  2. INBRIJA [Suspect]
     Active Substance: LEVODOPA
     Indication: On and off phenomenon
  3. CARBIDOPA\LEVODOPA [Concomitant]
     Active Substance: CARBIDOPA\LEVODOPA
     Indication: Product used for unknown indication
     Dosage: UNKNOWN
     Route: 048
  4. CARBIDOPA\LEVODOPA [Concomitant]
     Active Substance: CARBIDOPA\LEVODOPA
     Dosage: 25/100 MG (1,5 PILLS AT 5AM AND 8 AM AND 1 PILL 3X/DAY THE REMAINING PORTION OF THE DAY)
     Route: 048
  5. ENTACAPONE [Concomitant]
     Active Substance: ENTACAPONE
     Indication: Product used for unknown indication
     Dosage: 200 MILLIGRAM ( 1 PILL AAT 5AM AND 8 AM, O,5 PILL 3X/DAY FOR THE REMAINING TIME OF DAY)
     Route: 048

REACTIONS (4)
  - Incorrect dose administered by device [Unknown]
  - Poor quality sleep [Unknown]
  - Unevaluable event [Unknown]
  - Parkinson^s disease [Not Recovered/Not Resolved]

NARRATIVE: CASE EVENT DATE: 20220201
